FAERS Safety Report 20937757 (Version 1)
Quarter: 2022Q2

REPORT INFORMATION
  Report Type: Spontaneous
  Country: US (occurrence: US)
  Receive Date: 20220609
  Receipt Date: 20220609
  Transmission Date: 20220721
  Serious: No
  Sender: FDA-Public Use
  Company Number: US-BAUSCH-BL-2022-014024

PATIENT
  Age: 63 Year
  Sex: Male

DRUGS (2)
  1. PRIMIDONE [Suspect]
     Active Substance: PRIMIDONE
     Indication: Product used for unknown indication
     Route: 065
     Dates: start: 2021
  2. PRIMIDONE [Suspect]
     Active Substance: PRIMIDONE
     Dosage: IN THE MORNING AND EVENING
     Route: 065

REACTIONS (4)
  - Dyskinesia [Unknown]
  - Symptom recurrence [Unknown]
  - Underdose [Unknown]
  - Product dose omission issue [Unknown]

NARRATIVE: CASE EVENT DATE: 20210101
